FAERS Safety Report 20590106 (Version 1)
Quarter: 2022Q1

REPORT INFORMATION
  Report Type: Spontaneous
  Country: AU (occurrence: AU)
  Receive Date: 20220314
  Receipt Date: 20220314
  Transmission Date: 20220424
  Serious: Yes (Hospitalization)
  Sender: FDA-Public Use
  Company Number: AU-LUPIN PHARMACEUTICALS INC.-2022-03354

PATIENT
  Age: 14 Year
  Sex: Female
  Weight: 46 kg

DRUGS (2)
  1. POTASSIUM CHLORIDE [Interacting]
     Active Substance: POTASSIUM CHLORIDE
     Indication: Product used for unknown indication
     Dosage: 6000 MILLIGRAM (1.7 MMOL/KG), SUSTAINED-RELEASE TABLET
     Route: 048
  2. PREGABALIN [Interacting]
     Active Substance: PREGABALIN
     Indication: Product used for unknown indication
     Dosage: 150 MILLIGRAM
     Route: 048

REACTIONS (2)
  - Overdose [Unknown]
  - Intentional product misuse [Unknown]
